FAERS Safety Report 5016215-8 (Version None)
Quarter: 2006Q2

REPORT INFORMATION
  Report Type: 
  Country: None (occurrence: None)
  Receive Date: 20060414
  Receipt Date: 20060124
  Transmission Date: 20061013
  Serious: No
  Sender: FDA-Public Use
  Company Number: 2006SP000407

PATIENT
  Age: 50 Year
  Sex: Male
  Weight: 104.3273 kg

DRUGS (3)
  1. LUNESTA [Suspect]
     Dosage: 3MG; HS; ORAL
     Route: 048
     Dates: start: 20050101, end: 20060101
  2. LUNESTA [Suspect]
     Dosage: 3MG; HS; ORAL, 3MG; 1X; ORAL
     Route: 048
     Dates: start: 20060122, end: 20060122
  3. LUNESTA [Suspect]
     Dosage: 3MG; HS; ORAL, 3MG; 1X; ORAL
     Route: 048
     Dates: start: 20060122

REACTIONS (2)
  - DRUG INEFFECTIVE [None]
  - INITIAL INSOMNIA [None]
